FAERS Safety Report 26060308 (Version 1)
Quarter: 2025Q4

REPORT INFORMATION
  Report Type: Report from Study
  Country: US (occurrence: US)
  Receive Date: 20251118
  Receipt Date: 20251118
  Transmission Date: 20260118
  Serious: No
  Sender: JOHNSON AND JOHNSON
  Company Number: US-JNJFOC-20251155227

PATIENT

DRUGS (3)
  1. TREMFYA [Suspect]
     Active Substance: GUSELKUMAB
     Indication: Psoriasis
     Route: 065
     Dates: start: 20250308
  2. TREMFYA [Suspect]
     Active Substance: GUSELKUMAB
     Indication: Psoriatic arthropathy
  3. TREMFYA [Suspect]
     Active Substance: GUSELKUMAB

REACTIONS (4)
  - Hepatic enzyme increased [Unknown]
  - Off label use [Unknown]
  - Hepatic steatosis [Unknown]
  - Dysphagia [Unknown]
